FAERS Safety Report 24712678 (Version 1)
Quarter: 2024Q4

REPORT INFORMATION
  Report Type: Spontaneous
  Country: US (occurrence: None)
  Receive Date: 20241207
  Receipt Date: 20241207
  Transmission Date: 20250115
  Serious: Yes (Hospitalization, Disabling)
  Sender: Public
  Company Number: None

PATIENT
  Age: 64 Year
  Sex: Female
  Weight: 95.4 kg

DRUGS (8)
  1. INFLECTRA [Suspect]
     Active Substance: INFLIXIMAB-DYYB
     Indication: Crohn^s disease
     Dosage: OTHER FREQUENCY : Q8WEEKS;?
     Route: 042
  2. GENERIC INFLIXIMAB-DYYB [Concomitant]
  3. SODIUM BICARBONATE [Concomitant]
     Active Substance: SODIUM BICARBONATE
  4. OMEPRAZOLE [Concomitant]
     Active Substance: OMEPRAZOLE
  5. POTASSIUM [Concomitant]
     Active Substance: POTASSIUM
  6. B12 injection [Concomitant]
  7. IRON [Concomitant]
     Active Substance: IRON
  8. TYLENOL [Concomitant]
     Active Substance: ACETAMINOPHEN

REACTIONS (9)
  - Contusion [None]
  - Haematoma [None]
  - Dyspnoea [None]
  - Gait inability [None]
  - Haemoglobin decreased [None]
  - Renal impairment [None]
  - Product substitution issue [None]
  - Mycoplasma test positive [None]
  - Haemolytic anaemia [None]

NARRATIVE: CASE EVENT DATE: 20230622
